FAERS Safety Report 5699416-5 (Version None)
Quarter: 2008Q2

REPORT INFORMATION
  Report Type: 
  Country: None (occurrence: None)
  Receive Date: 20080404
  Receipt Date: 20080327
  Transmission Date: 20081010
  Serious: Yes (Other)
  Sender: FDA-Public Use
  Company Number: 163-21880-08040006

PATIENT
  Age: 66 Year
  Sex: Female

DRUGS (2)
  1. REVLIMID [Suspect]
     Indication: MULTIPLE MYELOMA
     Dosage: X21 DAYS EVERY 28 DAYS, ORAL : 25 MG, 1 IN 1 D, ORAL
     Route: 048
     Dates: start: 20070813, end: 20070901
  2. REVLIMID [Suspect]
     Indication: MULTIPLE MYELOMA
     Dosage: X21 DAYS EVERY 28 DAYS, ORAL : 25 MG, 1 IN 1 D, ORAL
     Route: 048
     Dates: start: 20070913

REACTIONS (1)
  - RENAL FAILURE CHRONIC [None]
